FAERS Safety Report 16448852 (Version 1)
Quarter: 2019Q2

REPORT INFORMATION
  Report Type: Report from Study
  Country: CA (occurrence: CA)
  Receive Date: 20190619
  Receipt Date: 20190619
  Transmission Date: 20190711
  Serious: Yes (Other)
  Sender: FDA-Public Use
  Company Number: CA-BRISTOL-MYERS SQUIBB COMPANY-BMS-2019-056847

PATIENT
  Age: 78 Year
  Sex: Female

DRUGS (1)
  1. ABATACEPT [Suspect]
     Active Substance: ABATACEPT
     Indication: PRODUCT USED FOR UNKNOWN INDICATION
     Dosage: 125 MILLIGRAM
     Route: 058
     Dates: start: 20131128

REACTIONS (3)
  - Swelling [Unknown]
  - Rib fracture [Unknown]
  - Fall [Unknown]

NARRATIVE: CASE EVENT DATE: 20190528
